FAERS Safety Report 22843792 (Version 6)
Quarter: 2023Q4

REPORT INFORMATION
  Report Type: Report from Study
  Country: US (occurrence: US)
  Receive Date: 20230821
  Receipt Date: 20231027
  Transmission Date: 20240109
  Serious: Yes (Hospitalization, Other)
  Sender: FDA-Public Use
  Company Number: US-GILEAD-2023-0640540

PATIENT
  Age: 81 Year
  Sex: Female

DRUGS (7)
  1. AMBRISENTAN [Suspect]
     Active Substance: AMBRISENTAN
     Indication: Pulmonary hypertension
     Dosage: 10 MG, QD
     Route: 065
     Dates: start: 20220526
  2. AMBRISENTAN [Suspect]
     Active Substance: AMBRISENTAN
     Indication: Pulmonary arterial hypertension
     Dosage: 10 MG, QD
     Route: 065
     Dates: start: 20220526
  3. TYVASO [Suspect]
     Active Substance: TREPROSTINIL
     Indication: Product used for unknown indication
     Dosage: UNK
     Route: 065
  4. SILDENAFIL [Concomitant]
     Active Substance: SILDENAFIL
  5. DILTIAZEM [Concomitant]
     Active Substance: DILTIAZEM
  6. WARFARIN [Concomitant]
     Active Substance: WARFARIN
  7. REVATIO [Concomitant]
     Active Substance: SILDENAFIL CITRATE

REACTIONS (13)
  - Cardiac pacemaker insertion [Recovered/Resolved]
  - Loss of consciousness [Recovered/Resolved]
  - Cardiac disorder [Unknown]
  - Cardiogenic shock [Unknown]
  - Arrhythmia [Unknown]
  - Fall [Unknown]
  - Head injury [Unknown]
  - Contusion [Unknown]
  - Dyspnoea exertional [Unknown]
  - Fatigue [Unknown]
  - Hypotension [Recovered/Resolved]
  - Dyspnoea [Unknown]
  - Feeling abnormal [Unknown]

NARRATIVE: CASE EVENT DATE: 20230116
